FAERS Safety Report 5664539-3 (Version None)
Quarter: 2008Q1

REPORT INFORMATION
  Report Type: 
  Country: None (occurrence: None)
  Receive Date: 20080314
  Receipt Date: 20080306
  Transmission Date: 20080703
  Serious: Yes (Hospitalization, Congenital Anomaly)
  Sender: FDA-Public Use
  Company Number: FR-ABBOTT-06P-056-0325643-00

PATIENT
  Age: 1 Day
  Sex: Female

DRUGS (1)
  1. DEPAKENE [Suspect]
     Indication: DRUG EXPOSURE DURING PREGNANCY
     Route: 064

REACTIONS (16)
  - CEREBRAL ATROPHY [None]
  - CLEFT UVULA [None]
  - CYANOSIS [None]
  - DEVELOPMENTAL DELAY [None]
  - DRUG EXPOSURE DURING PREGNANCY [None]
  - DYSMORPHISM [None]
  - GASTROOESOPHAGEAL REFLUX DISEASE [None]
  - HEAD CIRCUMFERENCE ABNORMAL [None]
  - HYPOTONIA [None]
  - INFANTILE ASTHMA [None]
  - MALAISE [None]
  - MYOPIA [None]
  - OTITIS MEDIA [None]
  - PSYCHOMOTOR RETARDATION [None]
  - RHINITIS [None]
  - SPEECH DISORDER DEVELOPMENTAL [None]
